FAERS Safety Report 10755833 (Version 1)
Quarter: 2015Q1

REPORT INFORMATION
  Report Type: Spontaneous
  Country: US (occurrence: US)
  Receive Date: 20150202
  Receipt Date: 20150202
  Transmission Date: 20150721
  Serious: Yes (Other)
  Sender: FDA-Public Use
  Company Number: US-CELGENE-USA-2015014627

PATIENT
  Sex: Male

DRUGS (1)
  1. REVLIMID [Suspect]
     Active Substance: LENALIDOMIDE
     Indication: PLASMA CELL MYELOMA
     Dosage: 2.5 MG TO 5 MG
     Route: 048
     Dates: start: 201401

REACTIONS (4)
  - Insomnia [Unknown]
  - Muscle spasms [Unknown]
  - Limb traumatic amputation [Unknown]
  - Nightmare [Unknown]
